FAERS Safety Report 16312272 (Version 1)
Quarter: 2019Q2

REPORT INFORMATION
  Report Type: Spontaneous
  Country: JP (occurrence: JP)
  Receive Date: 20190515
  Receipt Date: 20190515
  Transmission Date: 20190711
  Serious: Yes (Death, Life-Threatening, Other)
  Sender: FDA-Public Use
  Company Number: JP-ROCHE-2318414

PATIENT
  Age: 81 Year
  Sex: Female
  Weight: 47 kg

DRUGS (5)
  1. NORVASC [Concomitant]
     Active Substance: AMLODIPINE BESYLATE
     Dosage: DOSAGE IS UNCERTAIN.
     Route: 065
     Dates: end: 20190104
  2. ARTIST [Concomitant]
     Active Substance: CARVEDILOL
     Dosage: DOSAGE IS UNCERTAIN.
     Route: 065
     Dates: end: 20190104
  3. ZYLORIC [Concomitant]
     Active Substance: ALLOPURINOL
     Dosage: DOSAGE IS UNCERTAIN.
     Route: 065
     Dates: end: 20190104
  4. TECENTRIQ [Suspect]
     Active Substance: ATEZOLIZUMAB
     Indication: NON-SMALL CELL LUNG CANCER
     Route: 041
     Dates: start: 20181119, end: 20190104
  5. PLETAAL [Concomitant]
     Active Substance: CILOSTAZOL
     Dosage: DOSAGE IS UNCERTAIN.
     Route: 065
     Dates: end: 20190104

REACTIONS (3)
  - Myocardial infarction [Recovering/Resolving]
  - Non-small cell lung cancer [Fatal]
  - Cerebral infarction [Recovered/Resolved with Sequelae]

NARRATIVE: CASE EVENT DATE: 20190107
